FAERS Safety Report 8618489-0 (Version None)
Quarter: 2012Q3

REPORT INFORMATION
  Report Type: 
  Country: None (occurrence: None)
  Receive Date: 20120824
  Receipt Date: 20120810
  Transmission Date: 20120928
  Serious: Yes (Other)
  Sender: FDA-Public Use
  Company Number: GB-009507513-1007GBR00039

PATIENT

DRUGS (6)
  1. ISENTRESS [Suspect]
     Dosage: 800 MG, QD
     Route: 048
     Dates: start: 20100610
  2. ZIDOVUDINE [Concomitant]
     Dosage: 600 MG, QD
     Route: 048
     Dates: start: 20090101, end: 20100610
  3. LAMIVUDINE [Concomitant]
     Dosage: 300 MG, QD
     Route: 048
     Dates: start: 20090101, end: 20100610
  4. TENOFOVIR DISOPROXIL FUMARATE [Concomitant]
     Dosage: 300 MG, QD
     Route: 048
     Dates: start: 20100610
  5. NEVIRAPINE [Concomitant]
     Dosage: 400 MG, QD
     Route: 048
     Dates: start: 20090101, end: 20100610
  6. KALETRA [Concomitant]
     Route: 048
     Dates: start: 20100610

REACTIONS (2)
  - ADVERSE EVENT [None]
  - MATERNAL EXPOSURE DURING PREGNANCY [None]
